FAERS Safety Report 17941111 (Version 4)
Quarter: 2020Q3

REPORT INFORMATION
  Report Type: Spontaneous
  Country: US (occurrence: US)
  Receive Date: 20200624
  Receipt Date: 20200908
  Transmission Date: 20201103
  Serious: Yes (Hospitalization, Other)
  Sender: FDA-Public Use
  Company Number: US-GILEAD-2020-0473733

PATIENT
  Age: 39 Year
  Sex: Male
  Weight: 75 kg

DRUGS (23)
  1. REMDESIVIR. [Suspect]
     Active Substance: REMDESIVIR
     Indication: COVID-19
     Dosage: 100 MG, QD
     Route: 065
     Dates: start: 20200612, end: 20200616
  2. METOCLOPRAMIDE. [Concomitant]
     Active Substance: METOCLOPRAMIDE
     Dosage: 5 MG, Q8H
     Route: 042
  3. COTRIMOXAZOLE [Concomitant]
     Active Substance: SULFAMETHOXAZOLE\TRIMETHOPRIM
     Dosage: 7 DOSES
  4. PRECEDEX [Concomitant]
     Active Substance: DEXMEDETOMIDINE HYDROCHLORIDE
  5. SENNA?S [DOCUSATE SODIUM;SENNOSIDE A+B] [Concomitant]
     Dosage: UNK, BID
     Route: 048
     Dates: start: 20200616
  6. INSULIN [Concomitant]
     Active Substance: INSULIN NOS
     Route: 042
  7. PLASMA [Concomitant]
     Active Substance: HUMAN PLASMA
  8. DEXAMETHASONE. [Concomitant]
     Active Substance: DEXAMETHASONE
     Dosage: 6 MG, QD
     Route: 042
  9. FUROSEMIDE. [Concomitant]
     Active Substance: FUROSEMIDE
     Dosage: 20 MG, Q8H
     Route: 042
     Dates: start: 20200617
  10. MIDAZOLAM. [Concomitant]
     Active Substance: MIDAZOLAM
     Route: 042
  11. ASPIRIN [ACETYLSALICYLIC ACID] [Concomitant]
     Active Substance: ASPIRIN
     Dosage: 81 MG, QD
     Route: 048
     Dates: start: 20200613
  12. CHLORHEXIDINE [Concomitant]
     Active Substance: CHLORHEXIDINE
     Dosage: UNK
     Route: 048
     Dates: start: 20200613
  13. DEXMEDETOMIDINE. [Concomitant]
     Active Substance: DEXMEDETOMIDINE
     Route: 042
  14. ATIVAN [Concomitant]
     Active Substance: LORAZEPAM
  15. FENTANYL. [Concomitant]
     Active Substance: FENTANYL
     Route: 042
  16. CEFTRIAXONE. [Concomitant]
     Active Substance: CEFTRIAXONE
     Dosage: 1 G, QD
     Route: 042
  17. FAMOTIDINE. [Concomitant]
     Active Substance: FAMOTIDINE
     Dosage: 20 MG, BID
     Route: 048
     Dates: start: 20200613
  18. MVI [VITAMINS NOS] [Concomitant]
     Dosage: UNK
     Dates: start: 20200613
  19. VANCOMYCIN [Concomitant]
     Active Substance: VANCOMYCIN
     Dosage: UNK
     Route: 042
     Dates: start: 20200613, end: 20200617
  20. ARTIFICIAL TEARS [HYPROMELLOSE] [Concomitant]
     Dosage: UNK
     Dates: start: 20200613
  21. HEPARIN [Concomitant]
     Active Substance: HEPARIN SODIUM
     Route: 042
  22. OXYGEN. [Concomitant]
     Active Substance: OXYGEN
     Indication: HYPOXIA
  23. TOCILIZUMAB. [Concomitant]
     Active Substance: TOCILIZUMAB

REACTIONS (2)
  - Liver function test increased [Recovered/Resolved]
  - Respiratory failure [Recovered/Resolved]

NARRATIVE: CASE EVENT DATE: 20200612
